FAERS Safety Report 10641643 (Version 1)
Quarter: 2014Q4

REPORT INFORMATION
  Report Type: Spontaneous
  Country: US (occurrence: None)
  Receive Date: 20141208
  Receipt Date: 20141208
  Transmission Date: 20150529
  Serious: Yes (Life-Threatening)
  Sender: FDA-Public Use
  Company Number: None

PATIENT
  Age: 81 Year
  Sex: Male
  Weight: 65.5 kg

DRUGS (2)
  1. FENTANYL. [Suspect]
     Active Substance: FENTANYL
     Indication: ENDOTRACHEAL INTUBATION
     Route: 042
     Dates: start: 20140917, end: 20140917
  2. MIDAZOLAM [Suspect]
     Active Substance: MIDAZOLAM\MIDAZOLAM HYDROCHLORIDE
     Indication: ENDOTRACHEAL INTUBATION
     Dosage: 2 MG, OTHER, IV?
     Route: 042
     Dates: start: 20140917, end: 20140917

REACTIONS (3)
  - Palpitations [None]
  - Hypotension [None]
  - Pulseless electrical activity [None]

NARRATIVE: CASE EVENT DATE: 20140917
